FAERS Safety Report 12427299 (Version 1)
Quarter: 2016Q2

REPORT INFORMATION
  Report Type: Spontaneous
  Country: US (occurrence: US)
  Receive Date: 20160602
  Receipt Date: 20160602
  Transmission Date: 20160815
  Serious: Yes (Other)
  Sender: FDA-Public Use
  Company Number: US-AMGEN-USASP2016068007

PATIENT

DRUGS (9)
  1. XELODA [Concomitant]
     Active Substance: CAPECITABINE
     Dosage: UNK
     Dates: start: 20160105
  2. XGEVA [Suspect]
     Active Substance: DENOSUMAB
     Indication: METASTASIS
     Dosage: UNK
     Route: 065
     Dates: start: 2013
  3. AROMASIN [Concomitant]
     Active Substance: EXEMESTANE
     Indication: HORMONE THERAPY
     Dosage: UNK
     Dates: start: 20130202
  4. CARBOPLATIN. [Concomitant]
     Active Substance: CARBOPLATIN
     Dosage: UNK
     Dates: start: 20151021
  5. IBRANCE [Concomitant]
     Active Substance: PALBOCICLIB
     Dosage: UNK
     Dates: start: 20150514
  6. GEMZAR [Concomitant]
     Active Substance: GEMCITABINE HYDROCHLORIDE
     Dosage: UNK
  7. AFINITOR [Concomitant]
     Active Substance: EVEROLIMUS
     Dosage: UNK
     Dates: start: 20130217
  8. VELIPARIB [Concomitant]
     Active Substance: VELIPARIB
     Dosage: UNK
     Dates: start: 20130715
  9. FEMARA [Concomitant]
     Active Substance: LETROZOLE
     Dosage: UNK
     Dates: start: 20150514

REACTIONS (1)
  - Osteonecrosis of jaw [Unknown]
